FAERS Safety Report 19993572 (Version 3)
Quarter: 2021Q4

REPORT INFORMATION
  Report Type: Report from Study
  Country: NL (occurrence: NL)
  Receive Date: 20211025
  Receipt Date: 20211119
  Transmission Date: 20220303
  Serious: Yes (Hospitalization)
  Sender: FDA-Public Use
  Company Number: NVSC2021NL242123

PATIENT
  Sex: Female

DRUGS (4)
  1. MIDOSTAURIN [Suspect]
     Active Substance: MIDOSTAURIN
     Indication: Acute myeloid leukaemia
     Dosage: 100 MG
     Route: 048
     Dates: start: 20210930, end: 20211019
  2. MIDOSTAURIN [Suspect]
     Active Substance: MIDOSTAURIN
     Indication: Myelodysplastic syndrome
  3. DECITABINE [Suspect]
     Active Substance: DECITABINE
     Indication: Acute myeloid leukaemia
     Dosage: 35 MG
     Route: 042
     Dates: start: 20210920, end: 20210929
  4. DECITABINE [Suspect]
     Active Substance: DECITABINE
     Indication: Myelodysplastic syndrome
     Dosage: CYCLE 2
     Route: 042
     Dates: start: 20211025

REACTIONS (1)
  - Pneumonia [Recovered/Resolved]

NARRATIVE: CASE EVENT DATE: 20211020
